FAERS Safety Report 4633786-1 (Version None)
Quarter: 2005Q2

REPORT INFORMATION
  Report Type: 
  Country: None (occurrence: None)
  Receive Date: 20050413
  Receipt Date: 20041029
  Transmission Date: 20051028
  Serious: Yes (Life-Threatening, Hospitalization)
  Sender: FDA-Public Use
  Company Number: IT-ABBOTT-04P-083-0279411-00

PATIENT
  Age: 52 Year
  Sex: Male

DRUGS (4)
  1. DEPAKENE [Suspect]
     Indication: CLONIC CONVULSION
     Route: 048
     Dates: start: 20040701, end: 20040901
  2. DEPAKENE [Suspect]
     Route: 048
     Dates: start: 20040901, end: 20041021
  3. DEPAKENE [Suspect]
     Indication: STATUS EPILEPTICUS
     Route: 042
     Dates: start: 20040901
  4. PHENOBARBITAL SODIUM [Concomitant]
     Indication: CLONIC CONVULSION
     Route: 048
     Dates: start: 20030401

REACTIONS (4)
  - HYPERAMMONAEMIA [None]
  - METABOLIC ENCEPHALOPATHY [None]
  - MYOCLONIC EPILEPSY [None]
  - STATUS EPILEPTICUS [None]
